FAERS Safety Report 17371567 (Version 1)
Quarter: 2020Q1

REPORT INFORMATION
  Report Type: Spontaneous
  Country: US (occurrence: US)
  Receive Date: 20200205
  Receipt Date: 20200205
  Transmission Date: 20200409
  Serious: Yes (Other)
  Sender: FDA-Public Use
  Company Number: US-ASTRAZENECA-2020SE16981

PATIENT
  Age: 80 Year
  Sex: Female

DRUGS (3)
  1. TAFAMIDIS [Concomitant]
     Active Substance: TAFAMIDIS MEGLUMINE
  2. ROSUVASTATIN. [Suspect]
     Active Substance: ROSUVASTATIN
     Route: 048
  3. ATORVASTATIN [Concomitant]
     Active Substance: ATORVASTATIN

REACTIONS (1)
  - Rhabdomyolysis [Recovering/Resolving]
